FAERS Safety Report 24530106 (Version 1)
Quarter: 2024Q4

REPORT INFORMATION
  Report Type: Spontaneous
  Country: US (occurrence: None)
  Receive Date: 20241019
  Receipt Date: 20241019
  Transmission Date: 20250115
  Serious: Yes (Life-Threatening)
  Sender: Public
  Company Number: None

PATIENT
  Age: 87 Year
  Sex: Female
  Weight: 72.4 kg

DRUGS (1)
  1. TENECTEPLASE [Suspect]
     Active Substance: TENECTEPLASE
     Indication: Ischaemic stroke
     Dosage: OTHER FREQUENCY : ONCE;?
     Route: 040
     Dates: start: 20241019, end: 20241019

REACTIONS (1)
  - Angioedema [None]

NARRATIVE: CASE EVENT DATE: 20241019
